FAERS Safety Report 9025467 (Version 2)
Quarter: 2018Q1

REPORT INFORMATION
  Report Type: Spontaneous
  Country: DK (occurrence: DK)
  Receive Date: 20130122
  Receipt Date: 20180122
  Transmission Date: 20180509
  Serious: Yes (Death, Life-Threatening, Hospitalization, Other)
  Sender: FDA-Public Use
  Company Number: DK-ASTRAZENECA-2013SE04158

PATIENT
  Age: 21 Year
  Sex: Female
  Weight: 83 kg

DRUGS (20)
  1. RISPERDAL [Suspect]
     Active Substance: RISPERIDONE
     Indication: SCHIZOPHRENIA
     Dosage: 25 MG EVERY 14TH DAY
     Route: 030
     Dates: start: 20050706, end: 20050714
  2. TRILEPTAL [Suspect]
     Active Substance: OXCARBAZEPINE
     Indication: EPILEPSY
     Route: 065
     Dates: start: 199701
  3. DEPRAKINE [Suspect]
     Active Substance: VALPROIC ACID
     Indication: EPILEPSY
     Route: 065
     Dates: start: 1984
  4. SEROQUEL [Suspect]
     Active Substance: QUETIAPINE FUMARATE
     Indication: PSYCHOTIC DISORDER
     Route: 048
     Dates: start: 19921122, end: 20050714
  5. ORAP [Suspect]
     Active Substance: PIMOZIDE
     Indication: PSYCHOTIC DISORDER
     Dosage: 8.0MG UNKNOWN
     Route: 048
     Dates: start: 19921014, end: 20050714
  6. ROXIAM [Suspect]
     Active Substance: REMOXIPRIDE HYDROCHLORIDE
     Indication: PRODUCT USED FOR UNKNOWN INDICATION
     Route: 065
     Dates: start: 19920820
  7. LYSANTIN [Suspect]
     Active Substance: ORPHENADRINE HYDROCHLORIDE
     Indication: PRODUCT USED FOR UNKNOWN INDICATION
     Route: 065
  8. RIVOTRIL [Suspect]
     Active Substance: CLONAZEPAM
     Indication: PSYCHOTIC DISORDER
     Route: 048
     Dates: start: 19940810, end: 20050714
  9. DISIPAL [Suspect]
     Active Substance: ORPHENADRINE HYDROCHLORIDE
     Indication: ADVERSE DRUG REACTION
     Route: 048
     Dates: start: 19990714, end: 20050714
  10. OXAZEPAM. [Concomitant]
     Active Substance: OXAZEPAM
     Dosage: 15 MG AS NEEDED UP TO 4 TIMES PER DAY
  11. RISPERDAL [Suspect]
     Active Substance: RISPERIDONE
     Indication: SCHIZOPHRENIA
     Route: 048
     Dates: start: 20050706, end: 20050714
  12. ORAP [Suspect]
     Active Substance: PIMOZIDE
     Indication: PSYCHOTIC DISORDER
     Dosage: 6.0MG UNKNOWN
     Route: 048
  13. STILNOCT [Suspect]
     Active Substance: ZOLPIDEM TARTRATE
     Indication: PRODUCT USED FOR UNKNOWN INDICATION
     Route: 065
  14. PANTOLOC [Concomitant]
     Active Substance: PANTOPRAZOLE SODIUM
     Indication: GASTRIC ULCER
     Dosage: 40.0MG UNKNOWN
     Route: 048
     Dates: start: 19990815, end: 20050714
  15. DESOGESTREL AND ETHINYL ESTRADIOL [Concomitant]
     Active Substance: DESOGESTREL\ETHINYL ESTRADIOL
     Route: 048
  16. PINEX [Concomitant]
     Active Substance: ACETAMINOPHEN
     Dosage: 1 G ACCORDING TO NEED NO MORE THAN 3 TIMES PER DAY
     Route: 048
  17. RIVOTRIL [Suspect]
     Active Substance: CLONAZEPAM
     Indication: PSYCHOTIC DISORDER
     Route: 048
     Dates: start: 19941008
  18. TRUXAL [Suspect]
     Active Substance: CHLORPROTHIXENE
     Indication: PSYCHOTIC DISORDER
     Dosage: 50-100 MG AS NEEDED UP TO 250 MG PER DAY
     Route: 048
     Dates: start: 19980712, end: 20050714
  19. GAVISCON [Concomitant]
     Active Substance: ALUMINUM HYDROXIDE\MAGNESIUM CARBONATE
     Dosage: 15 ML AS REQUIRED NOT MORE THAN 3 TIMES PER DAY
     Route: 048
  20. PRIMPERAN [Concomitant]
     Active Substance: METOCLOPRAMIDE HYDROCHLORIDE
     Dosage: 20 MG AS NEEDED MORE THAN 2 TIMES PER DAY
     Route: 054

REACTIONS (23)
  - Sudden death [Fatal]
  - Ill-defined disorder [Unknown]
  - Weight decreased [Unknown]
  - Toothache [Unknown]
  - Vomiting [Not Recovered/Not Resolved]
  - Amenorrhoea [Recovered/Resolved]
  - Hallucination [Unknown]
  - Dyspnoea [Unknown]
  - Oropharyngeal pain [Unknown]
  - Abdominal pain upper [Unknown]
  - Aggression [Unknown]
  - Neuroleptic malignant syndrome [Not Recovered/Not Resolved]
  - Vomiting projectile [Unknown]
  - Psychotic disorder [Unknown]
  - Restlessness [Not Recovered/Not Resolved]
  - Dizziness [Unknown]
  - Schizophrenia [Unknown]
  - Anxiety [Unknown]
  - Nightmare [Not Recovered/Not Resolved]
  - Sleep disorder [Not Recovered/Not Resolved]
  - Seizure [Fatal]
  - Hepatic pain [Unknown]
  - Weight increased [Not Recovered/Not Resolved]

NARRATIVE: CASE EVENT DATE: 1993
